FAERS Safety Report 12326945 (Version 1)
Quarter: 2016Q2

REPORT INFORMATION
  Report Type: Spontaneous
  Country: US (occurrence: None)
  Receive Date: 20160502
  Receipt Date: 20160502
  Transmission Date: 20160815
  Serious: No
  Sender: FDA-Public Use
  Company Number: None

PATIENT
  Age: 59 Year
  Sex: Female
  Weight: 78.02 kg

DRUGS (22)
  1. VERAPAMIL [Concomitant]
     Active Substance: VERAPAMIL HYDROCHLORIDE
  2. NITROGLYCERIN. [Concomitant]
     Active Substance: NITROGLYCERIN
  3. MIRALAX [Concomitant]
     Active Substance: POLYETHYLENE GLYCOL 3350
  4. CRANBERRY. [Concomitant]
     Active Substance: CRANBERRY
  5. HYDROMORPHONE [Concomitant]
     Active Substance: HYDROMORPHONE
  6. FENTANYL. [Concomitant]
     Active Substance: FENTANYL
  7. XANAX [Concomitant]
     Active Substance: ALPRAZOLAM
  8. CYMBALTA [Concomitant]
     Active Substance: DULOXETINE HYDROCHLORIDE
  9. SERTRALINE [Concomitant]
     Active Substance: SERTRALINE HYDROCHLORIDE
  10. CYMBALTA [Suspect]
     Active Substance: DULOXETINE HYDROCHLORIDE
     Indication: DEPRESSION
     Route: 048
     Dates: start: 20160113
  11. SYNTHROID [Concomitant]
     Active Substance: LEVOTHYROXINE SODIUM
  12. SALINE BREAST IMPLANTS [Concomitant]
  13. CYMBALTA [Suspect]
     Active Substance: DULOXETINE HYDROCHLORIDE
     Indication: PAIN
     Route: 048
     Dates: start: 20160113
  14. RIGHT AND LEFT KNEE REPLACEMENTS [Concomitant]
  15. PACEMAKER/DEFIBRILLATOR [Concomitant]
  16. ASPIRIN. [Concomitant]
     Active Substance: ASPIRIN
  17. TIZANIDINE. [Concomitant]
     Active Substance: TIZANIDINE
  18. BENEFIBER [Concomitant]
     Active Substance: STARCH, WHEAT
  19. TRAZODONE [Concomitant]
     Active Substance: TRAZODONE HYDROCHLORIDE
  20. HYOSCYAMINE. [Concomitant]
     Active Substance: HYOSCYAMINE
  21. KRILL OIL [Concomitant]
     Active Substance: DIETARY SUPPLEMENT
  22. CALAN SR [Concomitant]
     Active Substance: VERAPAMIL HYDROCHLORIDE

REACTIONS (4)
  - Confusional state [None]
  - Dizziness [None]
  - Fatigue [None]
  - Blood pressure decreased [None]

NARRATIVE: CASE EVENT DATE: 20160407
